FAERS Safety Report 21312350 (Version 1)
Quarter: 2022Q3

REPORT INFORMATION
  Report Type: Spontaneous
  Country: US (occurrence: None)
  Receive Date: 20220909
  Receipt Date: 20220909
  Transmission Date: 20221026
  Serious: No
  Sender: FDA-Public Use
  Company Number: US-ARIS GLOBAL-202206-0997

PATIENT
  Sex: Male
  Weight: 81.720 kg

DRUGS (5)
  1. OXERVATE [Suspect]
     Active Substance: CENEGERMIN-BKBJ
     Indication: Neurotrophic keratopathy
     Route: 047
     Dates: start: 20220523
  2. RITUXAN [Concomitant]
     Active Substance: RITUXIMAB
     Dosage: 10 MG/ML VIAL
  3. CALCIUM\VITAMIN D [Concomitant]
     Active Substance: CALCIUM\VITAMIN D
     Dosage: 500MG-1000
  4. FISH OIL [Concomitant]
     Active Substance: FISH OIL
     Dosage: 100-160 MG
  5. CRESTOR [Concomitant]
     Active Substance: ROSUVASTATIN CALCIUM

REACTIONS (2)
  - Eye discharge [Unknown]
  - Eye pain [Unknown]
